FAERS Safety Report 7987986-3 (Version None)
Quarter: 2011Q4

REPORT INFORMATION
  Report Type: 
  Country: None (occurrence: None)
  Receive Date: 20111216
  Receipt Date: 20110523
  Transmission Date: 20120403
  Serious: No
  Sender: FDA-Public Use
  Company Number: US-BRISTOL-MYERS SQUIBB COMPANY-15769409

PATIENT
  Sex: Male

DRUGS (3)
  1. ABILIFY [Suspect]
     Indication: SCHIZOAFFECTIVE DISORDER
     Dosage: 2009 INCREASED -30 MG DAILY.
     Dates: end: 20110510
  2. PROZAC [Suspect]
     Dates: start: 20060830
  3. BENAZEPRIL HYDROCHLORIDE [Concomitant]

REACTIONS (6)
  - HYPERTENSION [None]
  - DYSARTHRIA [None]
  - HEADACHE [None]
  - TACHYCARDIA [None]
  - HEPATIC ENZYME INCREASED [None]
  - DYSPEPSIA [None]
